FAERS Safety Report 18241894 (Version 1)
Quarter: 2020Q3

REPORT INFORMATION
  Report Type: Spontaneous
  Country: TW (occurrence: TW)
  Receive Date: 20200908
  Receipt Date: 20200908
  Transmission Date: 20201103
  Serious: Yes (Death, Other)
  Sender: FDA-Public Use
  Company Number: TW-FRESENIUS KABI-FK202009112

PATIENT
  Age: 44 Year
  Sex: Male
  Weight: 100 kg

DRUGS (3)
  1. HYDROXYCHLOROQUINE [Concomitant]
     Active Substance: HYDROXYCHLOROQUINE
     Indication: COVID-19
     Route: 065
  2. HEPARIN (MANUFACTURER UNKNOWN) [Suspect]
     Active Substance: HEPARIN SODIUM
     Indication: ANTICOAGULANT THERAPY
     Route: 040
  3. HEPARIN (MANUFACTURER UNKNOWN) [Suspect]
     Active Substance: HEPARIN SODIUM
     Dosage: CONTINUOUS INFUSION TO KEEP ACTIVATED PARTIAL THROMBOPLASTIN TIME RATIO BETWEEN 1.5 AND 2.0
     Route: 065

REACTIONS (5)
  - Cardiac failure [Fatal]
  - Heparin-induced thrombocytopenia [Unknown]
  - Ventricular arrhythmia [Unknown]
  - Myocardial infarction [Unknown]
  - Gastrointestinal haemorrhage [Unknown]
